FAERS Safety Report 6639759-1 (Version None)
Quarter: 2010Q1

REPORT INFORMATION
  Report Type: 
  Country: None (occurrence: None)
  Receive Date: 20100318
  Receipt Date: 20100311
  Transmission Date: 20100710
  Serious: Yes (Life-Threatening, Hospitalization, Other)
  Sender: FDA-Public Use
  Company Number: PHHY2010FR15836

PATIENT
  Age: 11 Year

DRUGS (1)
  1. METOPROLOL TARTRATE [Suspect]

REACTIONS (7)
  - CARDIAC ARREST [None]
  - COMA [None]
  - HYPOKINESIA [None]
  - HYPOTENSION [None]
  - LIFE SUPPORT [None]
  - OVERDOSE [None]
  - SINUS RHYTHM [None]
